FAERS Safety Report 12053808 (Version 2)
Quarter: 2016Q2

REPORT INFORMATION
  Report Type: Spontaneous
  Country: US (occurrence: US)
  Receive Date: 20160209
  Receipt Date: 20160512
  Transmission Date: 20160815
  Serious: No
  Sender: FDA-Public Use
  Company Number: US-SA-2015SA180836

PATIENT
  Age: 86 Year
  Sex: Male

DRUGS (6)
  1. ZETIA [Concomitant]
     Active Substance: EZETIMIBE
  2. VITAMIN D [Concomitant]
     Active Substance: CHOLECALCIFEROL
     Dates: start: 2010
  3. ASPIRIN. [Concomitant]
     Active Substance: ASPIRIN
     Dates: start: 2005
  4. PRALUENT [Suspect]
     Active Substance: ALIROCUMAB
     Indication: BLOOD CHOLESTEROL INCREASED
     Dosage: 1ST + 15TH OF MONTH; 2 SHOTS PER MONTH
     Route: 065
     Dates: start: 20150831, end: 20151115
  5. ALIROCUMAB PREFILLED PEN [Concomitant]
     Active Substance: ALIROCUMAB
     Dosage: 1ST + 15TH OF MONTH
     Dates: start: 201507
  6. SYNTHROID [Concomitant]
     Active Substance: LEVOTHYROXINE SODIUM
     Dates: start: 2010

REACTIONS (4)
  - Paraesthesia [Not Recovered/Not Resolved]
  - Gait disturbance [Not Recovered/Not Resolved]
  - Pain in extremity [Not Recovered/Not Resolved]
  - Muscular weakness [Not Recovered/Not Resolved]

NARRATIVE: CASE EVENT DATE: 20150915
